FAERS Safety Report 4431748-0 (Version None)
Quarter: 2004Q3

REPORT INFORMATION
  Report Type: 
  Country: None (occurrence: None)
  Receive Date: 20040823
  Receipt Date: 20040823
  Transmission Date: 20050211
  Serious: Yes (Other)
  Sender: FDA-Public Use
  Company Number: None

PATIENT
  Age: 77 Year
  Sex: Male

DRUGS (5)
  1. CIPROFLOXACIN [Suspect]
     Indication: PREOPERATIVE CARE
     Dosage: ONE TIME DOSE PRE-OP IVPB
     Route: 040
     Dates: start: 20040729
  2. LACTATED RINGER'S [Concomitant]
  3. GLYCOPYRROLATE [Concomitant]
  4. RANITIDINE [Concomitant]
  5. ALBUTEROL AERSOL [Concomitant]

REACTIONS (4)
  - CHILLS [None]
  - DEPRESSED LEVEL OF CONSCIOUSNESS [None]
  - INFUSION RELATED REACTION [None]
  - TREMOR [None]
